FAERS Safety Report 8462913-3 (Version None)
Quarter: 2012Q2

REPORT INFORMATION
  Report Type: 
  Country: None (occurrence: None)
  Receive Date: 20120625
  Receipt Date: 20120618
  Transmission Date: 20120825
  Serious: Yes (Hospitalization)
  Sender: FDA-Public Use
  Company Number: FR-SANOFI-AVENTIS-2012SA043291

PATIENT
  Age: 86 Year
  Sex: Male

DRUGS (2)
  1. RIFADIN [Suspect]
     Route: 048
     Dates: start: 20120412, end: 20120424
  2. OFLOXACIN [Suspect]
     Route: 048
     Dates: start: 20120412

REACTIONS (6)
  - DECREASED APPETITE [None]
  - TRANSAMINASES INCREASED [None]
  - OEDEMA PERIPHERAL [None]
  - DISSEMINATED INTRAVASCULAR COAGULATION [None]
  - HEPATIC PAIN [None]
  - PURPURA [None]
